FAERS Safety Report 5139814-1 (Version None)
Quarter: 2006Q4

REPORT INFORMATION
  Report Type: 
  Country: None (occurrence: None)
  Receive Date: 20060905
  Receipt Date: 20060427
  Transmission Date: 20070319
  Serious: No
  Sender: FDA-Public Use
  Company Number: 35002

PATIENT
  Sex: Female

DRUGS (28)
  1. NEVANAC [Suspect]
     Indication: PROPHYLAXIS
  2. BSS [Concomitant]
  3. MIOTIC [Concomitant]
  4. VIGAMOX [Concomitant]
  5. ECONOPRED PLUS [Concomitant]
  6. TETRACAINE 0.5% STERI-UNITS [Concomitant]
  7. AVANDIA [Concomitant]
  8. DIGITEK [Concomitant]
  9. DIOVAN [Concomitant]
  10. HYDROCHLOROTHIAZIDE [Concomitant]
  11. KCC [Concomitant]
  12. TOPROL-XL [Concomitant]
  13. FUROSEMIDE [Concomitant]
  14. ALBUTEROL [Concomitant]
  15. TEMAZEPAM [Concomitant]
  16. DARVOCET [Concomitant]
  17. METFORMIN [Concomitant]
  18. ADVAIR DISKUS 100/50 [Concomitant]
  19. NEXIUM [Concomitant]
  20. ZOCOR [Concomitant]
  21. HYDROXYZINE [Concomitant]
  22. ZOLOFT [Concomitant]
  23. AMITRIPTYLINE HCL [Concomitant]
  24. HUMALOG [Concomitant]
  25. METROGEL [Concomitant]
  26. NORVOLIN [Concomitant]
  27. LANTUS [Concomitant]
  28. THIAMINE [Concomitant]

REACTIONS (1)
  - ANTERIOR CHAMBER INFLAMMATION [None]
